FAERS Safety Report 7334784-X (Version None)
Quarter: 2011Q1

REPORT INFORMATION
  Report Type: 
  Country: None (occurrence: None)
  Receive Date: 20110307
  Receipt Date: 20110221
  Transmission Date: 20110831
  Serious: Yes (Hospitalization, Other)
  Sender: FDA-Public Use
  Company Number: PHHY2011IN07145

PATIENT
  Age: 2 Year
  Sex: Male

DRUGS (6)
  1. PHENYLEPHRINE [Suspect]
     Dosage: 2.5 % 1 DROP INSTILLED 3 TIMES
     Route: 061
  2. TRICLOFOS [Concomitant]
     Dosage: 50 MG/KG
     Route: 048
  3. SEVOFLURANE [Concomitant]
  4. PHENYLEPHRINE [Suspect]
     Dosage: 5 %, 1 DROP
  5. GLYCOPYRROLATE [Concomitant]
     Dosage: 0.005 MG/KG
     Route: 030
  6. LASIX [Concomitant]

REACTIONS (6)
  - OXYGEN SATURATION DECREASED [None]
  - CREPITATIONS [None]
  - SECRETION DISCHARGE [None]
  - HYPERTENSIVE CRISIS [None]
  - HEART RATE INCREASED [None]
  - PULMONARY OEDEMA [None]
